FAERS Safety Report 19973296 (Version 2)
Quarter: 2022Q3

REPORT INFORMATION
  Report Type: Spontaneous
  Country: BG (occurrence: BG)
  Receive Date: 20211019
  Receipt Date: 20220712
  Transmission Date: 20221027
  Serious: Yes (Death, Life-Threatening, Hospitalization, Other)
  Sender: FDA-Public Use
  Company Number: BG-SUN PHARMACEUTICAL INDUSTRIES LTD-2021R1-314199

PATIENT
  Age: 20 Year
  Sex: Female

DRUGS (1)
  1. ACETAMINOPHEN [Suspect]
     Active Substance: ACETAMINOPHEN
     Indication: Product used for unknown indication
     Dosage: 5 GRAM, DAILY
     Route: 065

REACTIONS (7)
  - Overdose [Fatal]
  - Toxicity to various agents [Fatal]
  - Liver injury [Fatal]
  - Hepatic encephalopathy [Unknown]
  - Coma [Unknown]
  - Mucosal haemorrhage [Unknown]
  - Pulmonary oedema [Unknown]
